FAERS Safety Report 9192391 (Version 2)
Quarter: 2013Q2

REPORT INFORMATION
  Report Type: Spontaneous
  Country: US (occurrence: None)
  Receive Date: 20120703
  Receipt Date: 20121031
  Transmission Date: 20140414
  Serious: Yes (Hospitalization, Other)
  Sender: FDA-Public Use
  Company Number: PHEH2012US005221

PATIENT
  Age: 30 Year
  Sex: Male

DRUGS (1)
  1. GILENYA [Suspect]
     Indication: MULTIPLE SCLEROSIS
     Route: 048

REACTIONS (7)
  - Multiple sclerosis relapse [None]
  - Central nervous system lesion [None]
  - Malaise [None]
  - Balance disorder [None]
  - Dysstasia [None]
  - Asthenia [None]
  - Fatigue [None]
